FAERS Safety Report 10245295 (Version 2)
Quarter: 2014Q2

REPORT INFORMATION
  Report Type: Report from Study
  Country: DE (occurrence: DE)
  Receive Date: 20140618
  Receipt Date: 20140618
  Transmission Date: 20141212
  Serious: Yes (Hospitalization)
  Sender: FDA-Public Use
  Company Number: DE-ROCHE-1313971

PATIENT
  Age: 78 Year
  Sex: Female

DRUGS (11)
  1. CAPECITABINE [Suspect]
     Indication: BREAST CANCER
     Route: 048
     Dates: start: 20131127, end: 20131210
  2. CAPECITABINE [Suspect]
     Route: 048
     Dates: start: 20131218, end: 20131231
  3. CAPECITABINE [Suspect]
     Route: 048
     Dates: start: 20140108, end: 20140121
  4. CAPECITABINE [Suspect]
     Route: 048
     Dates: start: 20140129, end: 20140211
  5. CAPECITABINE [Suspect]
     Dosage: 2 TAGE
     Route: 048
     Dates: start: 20140219, end: 20140220
  6. CAPECITABINE [Suspect]
     Dosage: 12 TAGE
     Route: 048
     Dates: start: 20140221, end: 20140304
  7. CAPECITABINE [Suspect]
     Route: 048
     Dates: start: 20140312, end: 20140325
  8. CAPECITABINE [Suspect]
     Route: 048
     Dates: start: 20140402, end: 20140415
  9. CAPECITABINE [Suspect]
     Route: 048
     Dates: start: 20140423, end: 20140506
  10. CAPECITABINE [Suspect]
     Route: 048
     Dates: start: 20140514
  11. BEVACIZUMAB [Suspect]
     Indication: BREAST CANCER
     Route: 065
     Dates: start: 20131217

REACTIONS (2)
  - General physical health deterioration [Unknown]
  - Dyspnoea [Unknown]
